FAERS Safety Report 25805537 (Version 3)
Quarter: 2025Q3

REPORT INFORMATION
  Report Type: Spontaneous
  Country: EU (occurrence: EU)
  Receive Date: 20250916
  Receipt Date: 20250930
  Transmission Date: 20251020
  Serious: Yes (Other)
  Sender: ROCHE
  Company Number: EU-ROCHE-10000388545

PATIENT
  Age: 87 Year
  Sex: Male

DRUGS (1)
  1. RITUXIMAB [Suspect]
     Active Substance: RITUXIMAB
     Indication: Hairy cell leukaemia
     Route: 065

REACTIONS (1)
  - Calciphylaxis [Recovered/Resolved]
